FAERS Safety Report 25337362 (Version 1)
Quarter: 2025Q2

REPORT INFORMATION
  Report Type: Spontaneous
  Country: CN (occurrence: CN)
  Receive Date: 20250520
  Receipt Date: 20250520
  Transmission Date: 20250717
  Serious: Yes (Life-Threatening, Other)
  Sender: PURDUE
  Company Number: CN-NAPPMUNDI-GBR-2025-0125633

PATIENT
  Age: 39 Year
  Sex: Female
  Weight: 45 kg

DRUGS (2)
  1. OXYCODONE HYDROCHLORIDE [Suspect]
     Active Substance: OXYCODONE HYDROCHLORIDE
     Indication: Cancer pain
     Dosage: 10 MILLIGRAM, BID
     Route: 048
     Dates: start: 20250411, end: 20250417
  2. LEVOFLOXACIN [Concomitant]
     Active Substance: LEVOFLOXACIN
     Indication: Infection prophylaxis
     Dosage: 0.5 GRAM, DAILY
     Route: 041
     Dates: start: 20250411, end: 20250417

REACTIONS (14)
  - Loss of consciousness [Recovering/Resolving]
  - Seizure [Recovering/Resolving]
  - Vomiting [Recovering/Resolving]
  - Dizziness [Recovered/Resolved]
  - Abdominal pain [Recovered/Resolved]
  - Panic attack [Recovering/Resolving]
  - Amaurosis [Recovering/Resolving]
  - Cold sweat [Recovering/Resolving]
  - Headache [Recovering/Resolving]
  - Confusional state [Recovering/Resolving]
  - Disorganised speech [Recovering/Resolving]
  - Restlessness [Recovering/Resolving]
  - Tremor [Recovering/Resolving]
  - Vertigo [Recovering/Resolving]

NARRATIVE: CASE EVENT DATE: 20250415
